FAERS Safety Report 9959503 (Version 1)
Quarter: 2014Q1

REPORT INFORMATION
  Report Type: Spontaneous
  Country: US (occurrence: None)
  Receive Date: 20140227
  Receipt Date: 20140227
  Transmission Date: 20141002
  Serious: Yes (Hospitalization)
  Sender: FDA-Public Use
  Company Number: SYM-2014-17931

PATIENT
  Age: 89 Year
  Sex: Female

DRUGS (1)
  1. XENAZINE (TETRABENAZINE) (12.5 MILLIGRAM, TABLETS) (TETRABENAZINE) [Suspect]
     Indication: DYSKINESIA
     Dosage: 3 IN 1 D
     Route: 048
     Dates: start: 201209

REACTIONS (1)
  - Blood pressure inadequately controlled [None]
